FAERS Safety Report 13774912 (Version 1)
Quarter: 2017Q3

REPORT INFORMATION
  Report Type: Spontaneous
  Country: US (occurrence: US)
  Receive Date: 20170721
  Receipt Date: 20170721
  Transmission Date: 20171127
  Serious: No
  Sender: FDA-Public Use
  Company Number: US-009507513-1707USA006368

PATIENT
  Age: 68 Year
  Sex: Male

DRUGS (7)
  1. PROGRAF [Concomitant]
     Active Substance: TACROLIMUS\TACROLIMUS ANHYDROUS
  2. ZETIA [Concomitant]
     Active Substance: EZETIMIBE
  3. CELLCEPT [Concomitant]
     Active Substance: MYCOPHENOLATE MOFETIL\MYCOPHENOLATE MOFETIL HYDROCHLORIDE
  4. CARBATROL [Concomitant]
     Active Substance: CARBAMAZEPINE
  5. CRESTOR [Concomitant]
     Active Substance: ROSUVASTATIN CALCIUM
  6. BELSOMRA [Suspect]
     Active Substance: SUVOREXANT
     Indication: INSOMNIA
     Dosage: UNK UNK, QD
     Route: 048
     Dates: start: 20170622
  7. FENOFIBRATE. [Concomitant]
     Active Substance: FENOFIBRATE

REACTIONS (1)
  - Drug ineffective [Unknown]

NARRATIVE: CASE EVENT DATE: 20170622
